FAERS Safety Report 16742057 (Version 1)
Quarter: 2019Q3

REPORT INFORMATION
  Report Type: Spontaneous
  Country: US (occurrence: US)
  Receive Date: 20190826
  Receipt Date: 20190826
  Transmission Date: 20191005
  Serious: Yes (Hospitalization, Other)
  Sender: FDA-Public Use
  Company Number: US-ASTRAZENECA-2019SF21429

PATIENT
  Age: 58 Year
  Sex: Male
  Weight: 69.9 kg

DRUGS (17)
  1. ROSUVASTATIN CALCIUM. [Suspect]
     Active Substance: ROSUVASTATIN CALCIUM
     Indication: BLOOD CHOLESTEROL INCREASED
     Route: 048
     Dates: start: 201611
  2. FIRMAGON [Concomitant]
     Active Substance: DEGARELIX ACETATE
     Indication: PROSTATE CANCER
     Route: 058
     Dates: start: 201403
  3. LISINOPRIL. [Suspect]
     Active Substance: LISINOPRIL
     Indication: HYPERTENSION
     Route: 048
     Dates: start: 1999
  4. BYDUREON [Suspect]
     Active Substance: EXENATIDE
     Indication: TYPE 2 DIABETES MELLITUS
     Route: 058
     Dates: start: 20190816
  5. CABERGOLINE. [Concomitant]
     Active Substance: CABERGOLINE
     Indication: PROPHYLAXIS
     Dosage: 0.5 MG, THREE TIMES A WEEK, ON MONDAY, WEDNESDAY AND FRIDAY
     Route: 048
     Dates: start: 201103
  6. URSODIOL. [Concomitant]
     Active Substance: URSODIOL
     Indication: ANDROGEN DEFICIENCY
     Route: 048
     Dates: start: 201403
  7. ASPIRIN. [Concomitant]
     Active Substance: ASPIRIN
     Indication: CARDIAC DISORDER
     Route: 048
  8. TRULICITY [Concomitant]
     Active Substance: DULAGLUTIDE
     Indication: TYPE 2 DIABETES MELLITUS
     Dates: start: 201907, end: 201908
  9. ALPRAZOLAM. [Concomitant]
     Active Substance: ALPRAZOLAM
     Indication: ANXIETY
     Dosage: 0.5 MG, THREE TIMES DAILY AS NEEDED
     Route: 048
     Dates: start: 201506
  10. AVODART [Concomitant]
     Active Substance: DUTASTERIDE
     Indication: PROSTATE CANCER
     Route: 048
     Dates: start: 201010
  11. GLYBURIDE. [Concomitant]
     Active Substance: GLYBURIDE
     Indication: TYPE 2 DIABETES MELLITUS
     Route: 048
     Dates: start: 200011
  12. JANUVIA [Concomitant]
     Active Substance: SITAGLIPTIN PHOSPHATE
     Indication: TYPE 2 DIABETES MELLITUS
     Route: 048
     Dates: start: 201809
  13. ASPIRIN. [Concomitant]
     Active Substance: ASPIRIN
     Indication: DISCOMFORT
     Route: 048
  14. ZOLPIDEM [Concomitant]
     Active Substance: ZOLPIDEM TARTRATE
     Indication: INSOMNIA
     Dosage: 5 MG, AT NIGHT AS NEEDED
     Route: 048
  15. METFORMIN [Concomitant]
     Active Substance: METFORMIN HYDROCHLORIDE
     Indication: TYPE 2 DIABETES MELLITUS
     Route: 048
  16. BICALUTAMIDE. [Suspect]
     Active Substance: BICALUTAMIDE
     Indication: PROSTATE CANCER
     Route: 048
     Dates: start: 201401
  17. AMLODIPINE BESYLATE. [Concomitant]
     Active Substance: AMLODIPINE BESYLATE
     Indication: HYPERTENSION
     Route: 048
     Dates: start: 201812

REACTIONS (18)
  - Glycosylated haemoglobin increased [Not Recovered/Not Resolved]
  - Blood glucose increased [Recovering/Resolving]
  - Weight decreased [Recovered/Resolved]
  - Depression [Recovered/Resolved]
  - Intentional product misuse [Not Recovered/Not Resolved]
  - Prostate cancer [Recovered/Resolved with Sequelae]
  - Renal failure [Recovered/Resolved]
  - Weight increased [Not Recovered/Not Resolved]
  - Incorrect dose administered by device [Not Recovered/Not Resolved]
  - Decreased appetite [Recovered/Resolved]
  - Ear pain [Not Recovered/Not Resolved]
  - Blood cholesterol increased [Recovered/Resolved with Sequelae]
  - Squamous cell carcinoma [Unknown]
  - Basal cell carcinoma [Unknown]
  - Acute kidney injury [Recovered/Resolved]
  - Type 2 diabetes mellitus [Unknown]
  - Nausea [Recovered/Resolved]
  - Device malfunction [Unknown]

NARRATIVE: CASE EVENT DATE: 2002
